FAERS Safety Report 7998353-0 (Version None)
Quarter: 2011Q4

REPORT INFORMATION
  Report Type: 
  Country: None (occurrence: None)
  Receive Date: 20111221
  Receipt Date: 20110807
  Transmission Date: 20120403
  Serious: No
  Sender: FDA-Public Use
  Company Number: US-GLAXOSMITHKLINE-A0940414A

PATIENT
  Age: 51 Year
  Sex: Female

DRUGS (1)
  1. LOVAZA [Suspect]
     Indication: PRODUCT USED FOR UNKNOWN INDICATION

REACTIONS (8)
  - RASH [None]
  - URTICARIA [None]
  - MALAISE [None]
  - HERPES ZOSTER [None]
  - DECREASED IMMUNE RESPONSIVENESS [None]
  - BLOOD IMMUNOGLOBULIN E ABNORMAL [None]
  - DRUG ERUPTION [None]
  - ARTHRALGIA [None]
